FAERS Safety Report 23364350 (Version 2)
Quarter: 2024Q1

REPORT INFORMATION
  Report Type: Other
  Country: US (occurrence: None)
  Receive Date: 20240104
  Receipt Date: 20240105
  Transmission Date: 20240410
  Serious: Yes (Death, Other)
  Sender: FDA-Public Use
  Company Number: US-ROCHE-3482753

PATIENT

DRUGS (5)
  1. BEVACIZUMAB [Suspect]
     Active Substance: BEVACIZUMAB
     Indication: Cervix cancer metastatic
     Dosage: ONCE
     Route: 042
  2. CARBOPLATIN [Suspect]
     Active Substance: CARBOPLATIN
     Indication: Cervix cancer metastatic
     Dosage: 6 CYCLES
     Route: 042
  3. CISPLATIN [Suspect]
     Active Substance: CISPLATIN
     Indication: Cervix cancer metastatic
     Dosage: 6 CYCLES
     Route: 042
  4. PACLITAXEL [Suspect]
     Active Substance: PACLITAXEL
     Indication: Cervix cancer metastatic
     Dosage: 6 CYCLES
     Route: 042
  5. PEMBROLIZUMAB [Suspect]
     Active Substance: PEMBROLIZUMAB
     Indication: Cervix cancer metastatic
     Route: 042

REACTIONS (41)
  - Pancreatitis [Fatal]
  - Encephalitis [Fatal]
  - Anaemia [Unknown]
  - Nausea [Unknown]
  - Diarrhoea [Unknown]
  - Constipation [Unknown]
  - Fatigue [Unknown]
  - Arthralgia [Unknown]
  - Vomiting [Unknown]
  - Neuropathy peripheral [Unknown]
  - Hypertension [Unknown]
  - Urinary tract infection [Unknown]
  - Neutropenia [Unknown]
  - Peripheral sensory neuropathy [Unknown]
  - Asthenia [Unknown]
  - Decreased appetite [Unknown]
  - Thrombocytopenia [Unknown]
  - Hypothyroidism [Unknown]
  - Myalgia [Unknown]
  - Platelet count decreased [Unknown]
  - Proteinuria [Unknown]
  - Leukopenia [Unknown]
  - White blood cell count decreased [Unknown]
  - Rash [Unknown]
  - Alanine aminotransferase increased [Unknown]
  - Epistaxis [Unknown]
  - Colitis [Unknown]
  - Skin reaction [Unknown]
  - Thyroiditis [Unknown]
  - Pneumonitis [Unknown]
  - Hepatitis [Unknown]
  - Adrenal insufficiency [Unknown]
  - Myositis [Unknown]
  - Type 1 diabetes mellitus [Unknown]
  - Nephritis [Unknown]
  - Cholangitis sclerosing [Unknown]
  - Hypophysitis [Unknown]
  - Myocarditis [Unknown]
  - Hyperthyroidism [Unknown]
  - Vasculitis [Unknown]
  - Alopecia [Unknown]
